FAERS Safety Report 6534489-9 (Version None)
Quarter: 2010Q1

REPORT INFORMATION
  Report Type: 
  Country: None (occurrence: None)
  Receive Date: 20100112
  Receipt Date: 20100105
  Transmission Date: 20100710
  Serious: Yes (Other)
  Sender: FDA-Public Use
  Company Number: US-PFIZER INC-2008061565

PATIENT
  Sex: Female
  Weight: 54.422 kg

DRUGS (3)
  1. DILANTIN-125 [Suspect]
     Indication: CONVULSION
     Dosage: 100 MG, 3X/DAY
     Route: 048
     Dates: start: 19820101
  2. DILANTIN-125 [Suspect]
     Indication: EPILEPSY
  3. KEPPRA [Concomitant]
     Indication: EPILEPSY
     Dosage: UNK

REACTIONS (7)
  - AMNESIA [None]
  - CONVULSION [None]
  - DENTAL CARIES [None]
  - GINGIVAL DISORDER [None]
  - GINGIVAL HYPERTROPHY [None]
  - OSTEOPOROSIS [None]
  - TOOTH DISORDER [None]
